FAERS Safety Report 4577703-1 (Version None)
Quarter: 2005Q1

REPORT INFORMATION
  Report Type: 
  Country: None (occurrence: None)
  Receive Date: 20050127
  Receipt Date: 20040831
  Transmission Date: 20050727
  Serious: No
  Sender: FDA-Public Use
  Company Number: USA040876535

PATIENT
  Sex: Male

DRUGS (2)
  1. STRATTERA [Suspect]
     Indication: ATTENTION DEFICIT/HYPERACTIVITY DISORDER
     Dosage: 25 MG IN THE MORNING
     Dates: start: 20040815, end: 20040826
  2. LAMICTAL [Concomitant]

REACTIONS (6)
  - ANXIETY [None]
  - DRUG INTERACTION [None]
  - ERECTILE DYSFUNCTION [None]
  - FEELING JITTERY [None]
  - FREEZING PHENOMENON [None]
  - INSOMNIA [None]
